FAERS Safety Report 4288453-3 (Version None)
Quarter: 2004Q1

REPORT INFORMATION
  Report Type: 
  Country: None (occurrence: None)
  Receive Date: 20040209
  Receipt Date: 20040209
  Transmission Date: 20041129
  Serious: Yes (Other)
  Sender: FDA-Public Use
  Company Number: None

PATIENT
  Age: 52 Year
  Sex: Male
  Weight: 90.2658 kg

DRUGS (9)
  1. ZELNORM [Suspect]
     Dosage: 6 MG++ PO ORAL
     Route: 048
  2. ROCEPHIN [Concomitant]
  3. LEVAQUIN [Concomitant]
  4. ATENOLOL [Concomitant]
  5. CODICLEAR-DH [Concomitant]
  6. K-DUR 10 [Concomitant]
  7. MUCOFEN [Concomitant]
  8. METHYLPREDNISOLONE [Concomitant]
  9. ACETAMINOPHEN [Concomitant]

REACTIONS (1)
  - ILEUS [None]
